FAERS Safety Report 12925310 (Version 2)
Quarter: 2017Q1

REPORT INFORMATION
  Report Type: Spontaneous
  Country: US (occurrence: US)
  Receive Date: 20161108
  Receipt Date: 20170209
  Transmission Date: 20170428
  Serious: No
  Sender: FDA-Public Use
  Company Number: US-SA-2016SA148635

PATIENT
  Sex: Female

DRUGS (2)
  1. ALIROCUMAB PREFILLED PEN [Suspect]
     Active Substance: ALIROCUMAB
     Indication: OCCUPATIONAL EXPOSURE TO PRODUCT
     Dates: start: 20160811, end: 20160811
  2. PRALUENT [Suspect]
     Active Substance: ALIROCUMAB
     Indication: OCCUPATIONAL EXPOSURE TO PRODUCT
     Route: 061
     Dates: start: 20160811, end: 20160811

REACTIONS (1)
  - Occupational exposure to product [Unknown]

NARRATIVE: CASE EVENT DATE: 20160811
